FAERS Safety Report 5623992-1 (Version None)
Quarter: 2008Q1

REPORT INFORMATION
  Report Type: 
  Country: None (occurrence: None)
  Receive Date: 20080213
  Receipt Date: 20080205
  Transmission Date: 20080703
  Serious: Yes (Other)
  Sender: FDA-Public Use
  Company Number: US-WYE-H02437608

PATIENT
  Age: 25 Year
  Sex: Male
  Weight: 113.5 kg

DRUGS (7)
  1. EFFEXOR [Suspect]
     Dosage: OVERDOSE AMOUNT UNSPECIFIED
     Dates: start: 20070101, end: 20070101
  2. LITHIUM CARBONATE [Suspect]
     Indication: BIPOLAR DISORDER
     Dates: start: 20070321, end: 20070403
  3. PAROXETINE HCL [Concomitant]
     Dates: start: 20070309, end: 20070321
  4. RISPERDAL [Suspect]
     Indication: BIPOLAR DISORDER
     Dates: start: 20070321
  5. LEXAPRO [Suspect]
     Indication: DEPRESSION
     Dosage: OVERDOSE AMOUNT UNSPECIFIED
     Dates: start: 20070101, end: 20070101
  6. XANAX [Suspect]
     Indication: DEPRESSION
     Dates: start: 20070216, end: 20070101
  7. XANAX [Suspect]
     Indication: ANXIETY
     Dates: start: 20070101, end: 20070321

REACTIONS (6)
  - ANXIETY [None]
  - DEPRESSION [None]
  - INTENTIONAL OVERDOSE [None]
  - ROAD TRAFFIC ACCIDENT [None]
  - SUICIDAL IDEATION [None]
  - SUICIDE ATTEMPT [None]
